FAERS Safety Report 7578729-6 (Version None)
Quarter: 2011Q2

REPORT INFORMATION
  Report Type: 
  Country: None (occurrence: None)
  Receive Date: 20110628
  Receipt Date: 20110622
  Transmission Date: 20111010
  Serious: Yes (Other)
  Sender: FDA-Public Use
  Company Number: US-ELI_LILLY_AND_COMPANY-US201003004460

PATIENT
  Sex: Female
  Weight: 133.79 kg

DRUGS (12)
  1. BYETTA [Suspect]
     Dosage: UNK UNK, UNKNOWN
     Dates: start: 20070913, end: 20071013
  2. METFORMIN HCL [Concomitant]
     Indication: DIABETES MELLITUS
  3. BYETTA [Suspect]
     Dosage: UNK, UNKNOWN
     Dates: end: 20090101
  4. MELOXICAM [Concomitant]
     Indication: PAIN
  5. ALPRAZOLAM [Concomitant]
     Indication: ANXIETY
  6. BYETTA [Suspect]
     Dosage: UNK, UNK
     Dates: start: 20070725, end: 20070925
  7. TYLENOL (CAPLET) [Concomitant]
     Indication: HEADACHE
  8. ANTIBIOTICS [Concomitant]
  9. NITROGLYCERIN [Concomitant]
     Indication: CHEST PAIN
  10. CRESTOR [Concomitant]
     Indication: BLOOD CHOLESTEROL
  11. CALCIUM CARBONATE [Concomitant]
     Indication: ARTHRITIS
  12. BETA BLOCKING AGENTS [Concomitant]
     Indication: BLOOD PRESSURE INCREASED

REACTIONS (5)
  - RENAL INJURY [None]
  - CREATININE URINE INCREASED [None]
  - CREATININE RENAL CLEARANCE INCREASED [None]
  - PANCREATITIS [None]
  - CROHN'S DISEASE [None]
